FAERS Safety Report 4295162-3 (Version None)
Quarter: 2004Q1

REPORT INFORMATION
  Report Type: 
  Country: None (occurrence: None)
  Receive Date: 20040212
  Receipt Date: 20040127
  Transmission Date: 20041129
  Serious: Yes (Death, Hospitalization)
  Sender: FDA-Public Use
  Company Number: 187541

PATIENT
  Age: 63 Year
  Sex: Male
  Weight: 68.0396 kg

DRUGS (1)
  1. AVONEX [Suspect]
     Indication: MULTIPLE SCLEROSIS
     Dosage: 30 MCG QW IM
     Route: 030
     Dates: start: 19980101, end: 20000804

REACTIONS (8)
  - AUTONOMIC NERVOUS SYSTEM IMBALANCE [None]
  - CARDIAC ARREST [None]
  - COLON CANCER STAGE III [None]
  - DIABETES MELLITUS [None]
  - HYPOTENSION [None]
  - METASTASES TO LIVER [None]
  - METASTASES TO PERITONEUM [None]
  - POST PROCEDURAL COMPLICATION [None]
